FAERS Safety Report 7619921-1 (Version None)
Quarter: 2011Q3

REPORT INFORMATION
  Report Type: 
  Country: None (occurrence: None)
  Receive Date: 20110719
  Receipt Date: 20110711
  Transmission Date: 20111222
  Serious: Yes (Other)
  Sender: FDA-Public Use
  Company Number: GB-ELI_LILLY_AND_COMPANY-GB201107002584

PATIENT
  Age: 59 Year
  Sex: Female
  Weight: 92.2 kg

DRUGS (19)
  1. ACETAMINOPHEN AND CODEINE PHOSPHATE [Concomitant]
     Dosage: UNK
     Dates: start: 20110303, end: 20110331
  2. BYETTA [Suspect]
     Indication: TYPE 2 DIABETES MELLITUS
     Dosage: UNK, UNKNOWN
     Route: 058
     Dates: start: 20110630, end: 20110630
  3. GAVISCON                           /00237601/ [Concomitant]
     Dosage: UNK
     Dates: start: 20110519, end: 20110526
  4. LOPERAMIDE [Concomitant]
     Dosage: UNK
     Dates: start: 20110303, end: 20110502
  5. ACETAMINOPHEN [Concomitant]
     Dosage: UNK
     Dates: start: 20110303, end: 20110331
  6. GLUCOSE [Concomitant]
     Dosage: UNK
     Dates: start: 20110610, end: 20110617
  7. ASPIRIN [Concomitant]
     Dosage: UNK
     Dates: start: 20110303, end: 20110428
  8. CEPHALEXIN [Concomitant]
     Dosage: UNK
     Dates: start: 20110413
  9. SIMVASTATIN [Concomitant]
     Dosage: UNK
     Dates: start: 20110303
  10. SITAGLIPTIN [Concomitant]
     Dosage: UNK
     Dates: start: 20110303, end: 20110402
  11. CALCICHEW D3 [Concomitant]
     Dosage: UNK
     Dates: start: 20110303, end: 20110502
  12. HUMALIN [Concomitant]
     Dosage: UNK
     Dates: start: 20110602, end: 20110612
  13. ALENDRONIC ACID [Concomitant]
     Dosage: UNK
     Dates: start: 20110303
  14. LANSOPRAZOLE [Concomitant]
     Dosage: UNK
     Dates: start: 20110303
  15. METFORMIN HCL [Concomitant]
     Dosage: UNK
     Dates: start: 20110303, end: 20110428
  16. RAMIPRIL [Concomitant]
     Dosage: UNK
     Dates: start: 20110303
  17. TRIMETHOPRIM [Concomitant]
     Dosage: UNK
     Dates: start: 20110407, end: 20110414
  18. DOXAZOSIN MESYLATE [Concomitant]
     Dosage: UNK
     Dates: start: 20110303
  19. GLICLAZIDE [Concomitant]
     Dosage: UNK
     Dates: start: 20110303

REACTIONS (2)
  - LIVER FUNCTION TEST ABNORMAL [None]
  - C-REACTIVE PROTEIN INCREASED [None]
